FAERS Safety Report 7417497-5 (Version None)
Quarter: 2011Q2

REPORT INFORMATION
  Report Type: 
  Country: None (occurrence: None)
  Receive Date: 20110415
  Receipt Date: 20110411
  Transmission Date: 20111010
  Serious: Yes (Hospitalization)
  Sender: FDA-Public Use
  Company Number: JP-SANOFI-AVENTIS-2011SA022545

PATIENT
  Age: 63 Year
  Sex: Male
  Weight: 77 kg

DRUGS (2)
  1. NOVORAPID [Concomitant]
     Indication: DIABETES MELLITUS
     Dosage: FROM 4 WEEKS BEFORE THE ADMINISTRATION OF INSULIN GLULISINE. DOSE:10 UNIT(S)
     Route: 058
     Dates: end: 20100804
  2. APIDRA [Suspect]
     Indication: DIABETES MELLITUS
     Dosage: DOSE:10 UNIT(S)
     Route: 058
     Dates: start: 20100804, end: 20101208

REACTIONS (1)
  - ADVERSE EVENT [None]
